FAERS Safety Report 12597444 (Version 1)
Quarter: 2016Q3

REPORT INFORMATION
  Report Type: Spontaneous
  Country: US (occurrence: None)
  Receive Date: 20160726
  Receipt Date: 20160726
  Transmission Date: 20161109
  Serious: Yes (Hospitalization, Disabling)
  Sender: FDA-Public Use
  Company Number: None

PATIENT
  Age: 37 Year
  Sex: Male
  Weight: 68.49 kg

DRUGS (4)
  1. PERCOCET [Concomitant]
     Active Substance: ACETAMINOPHEN\OXYCODONE HYDROCHLORIDE
  2. SEROQUEL XR [Suspect]
     Active Substance: QUETIAPINE FUMARATE
     Indication: PSYCHOTIC DISORDER
     Dosage: 3 TABLET(S) IN THE MORNING TAKEN BY MOUTH
     Route: 048
  3. SEROQUEL XR [Suspect]
     Active Substance: QUETIAPINE FUMARATE
     Indication: BIPOLAR DISORDER
     Dosage: 3 TABLET(S) IN THE MORNING TAKEN BY MOUTH
     Route: 048
  4. SIMETHICONE (GAS-X) [Concomitant]

REACTIONS (3)
  - Abdominal pain [None]
  - Volvulus [None]
  - Rectal haemorrhage [None]

NARRATIVE: CASE EVENT DATE: 20160714
